FAERS Safety Report 16813683 (Version 1)
Quarter: 2019Q3

REPORT INFORMATION
  Report Type: Spontaneous
  Country: US (occurrence: US)
  Receive Date: 20190725
  Receipt Date: 20190725
  Transmission Date: 20191005
  Serious: No
  Sender: FDA-Public Use
  Company Number: None

PATIENT
  Age: 49 Year
  Sex: Female

DRUGS (1)
  1. VOSEVI [Suspect]
     Active Substance: SOFOSBUVIR\VELPATASVIR\VOXILAPREVIR
     Dates: start: 201906

REACTIONS (4)
  - Vomiting [None]
  - Weight decreased [None]
  - Feeling abnormal [None]
  - Bone pain [None]

NARRATIVE: CASE EVENT DATE: 20190725
